FAERS Safety Report 19146043 (Version 1)
Quarter: 2021Q2

REPORT INFORMATION
  Report Type: Spontaneous
  Country: US (occurrence: US)
  Receive Date: 20210416
  Receipt Date: 20210416
  Transmission Date: 20210717
  Serious: No
  Sender: FDA-Public Use
  Company Number: US-GALDERMA-US2021004665

PATIENT
  Age: 49 Year
  Sex: Female

DRUGS (2)
  1. DIFFERIN GEL [Suspect]
     Active Substance: ADAPALENE
     Indication: ACNE CYSTIC
     Dosage: 0.1%
     Route: 061
     Dates: start: 202102, end: 202102
  2. DIFFERIN GEL [Suspect]
     Active Substance: ADAPALENE
     Indication: SKIN WRINKLING

REACTIONS (2)
  - Skin indentation [Not Recovered/Not Resolved]
  - Product use in unapproved indication [Recovered/Resolved]

NARRATIVE: CASE EVENT DATE: 202102
